FAERS Safety Report 13599069 (Version 1)
Quarter: 2017Q2

REPORT INFORMATION
  Report Type: Spontaneous
  Country: US (occurrence: US)
  Receive Date: 20170531
  Receipt Date: 20170531
  Transmission Date: 20170830
  Serious: Yes (Death)
  Sender: FDA-Public Use
  Company Number: US-LEADIANT BIOSCIENCES INC-2017STPI000392

PATIENT
  Age: 53 Year
  Sex: Male

DRUGS (1)
  1. MATULANE [Suspect]
     Active Substance: PROCARBAZINE HYDROCHLORIDE
     Indication: PLASMA CELL MYELOMA
     Dosage: 100 MG, DAYS 8 - 21 OF CYCLE
     Route: 048
     Dates: start: 20170221

REACTIONS (1)
  - Death [Fatal]

NARRATIVE: CASE EVENT DATE: 20170511
